FAERS Safety Report 24213357 (Version 1)
Quarter: 2024Q3

REPORT INFORMATION
  Report Type: Spontaneous
  Country: US (occurrence: US)
  Receive Date: 20240815
  Receipt Date: 20240815
  Transmission Date: 20241017
  Serious: No
  Sender: MYLAN
  Company Number: US-MYLANLABS-2024M1073250

PATIENT

DRUGS (1)
  1. ESTRADIOL TRANSDERMAL SYSTEM [Suspect]
     Active Substance: ESTRADIOL
     Indication: Product used for unknown indication
     Dosage: 0.075 MILLIGRAM, QD
     Route: 062

REACTIONS (3)
  - Product adhesion issue [Unknown]
  - Device delivery system issue [Unknown]
  - Drug ineffective [Unknown]
